FAERS Safety Report 7518953-1 (Version None)
Quarter: 2011Q2

REPORT INFORMATION
  Report Type: 
  Country: None (occurrence: None)
  Receive Date: 20110523
  Receipt Date: 20110511
  Transmission Date: 20111010
  Serious: Yes (Other)
  Sender: FDA-Public Use
  Company Number: CA-1186182

PATIENT
  Age: 3 Day

DRUGS (1)
  1. CYCLOGYL [Suspect]
     Dosage: (2 GTT OU OPHTHALMIC)
     Route: 047

REACTIONS (3)
  - CONVULSION [None]
  - HYPERPYREXIA [None]
  - DYSPNOEA [None]
